FAERS Safety Report 6544326-4 (Version None)
Quarter: 2010Q1

REPORT INFORMATION
  Report Type: 
  Country: None (occurrence: None)
  Receive Date: 20100120
  Receipt Date: 20100120
  Transmission Date: 20100710
  Serious: Yes (Life-Threatening, Disabling, Other)
  Sender: FDA-Public Use
  Company Number: None

PATIENT
  Age: 78 Year
  Sex: Female
  Weight: 58.9676 kg

DRUGS (2)
  1. AMIODARONE HCL [Suspect]
     Indication: CARDIOVASCULAR DISORDER
     Dosage: 200 MG, 1/2 TABLET DAILY
     Dates: start: 20081201, end: 20091214
  2. SIMVASTATIN [Suspect]
     Indication: CARDIOVASCULAR DISORDER
     Dosage: 80 MG AT BEDTIME PO
     Route: 048
     Dates: start: 20081201, end: 20091214

REACTIONS (6)
  - ASCITES [None]
  - DECREASED APPETITE [None]
  - FATIGUE [None]
  - MALAISE [None]
  - MUSCULAR WEAKNESS [None]
  - OEDEMA PERIPHERAL [None]
